FAERS Safety Report 9542456 (Version 2)
Quarter: 2013Q3

REPORT INFORMATION
  Report Type: Spontaneous
  Country: US (occurrence: US)
  Receive Date: 20130923
  Receipt Date: 20130923
  Transmission Date: 20140515
  Serious: Yes (Hospitalization)
  Sender: FDA-Public Use
  Company Number: US-PFIZER INC-2013251311

PATIENT
  Age: 75 Year
  Sex: Female
  Weight: 54.42 kg

DRUGS (14)
  1. SUTENT [Suspect]
     Indication: MALIGNANT URINARY TRACT NEOPLASM
     Dosage: 12.5MG+25MG/DAY FOR 4 WEEKS+OFF 2 WEEKS
     Route: 048
     Dates: start: 20130802
  2. SUTENT [Suspect]
     Indication: RENAL CANCER
  3. ACETAMINOPHEN W/OXYCODONE [Concomitant]
     Indication: PAIN
     Dosage: 325-5 MG, AS NEEDED (TAKE 1 TABLET MOUTH EVERY 4 HOURS AS NEEDED)
     Route: 048
  4. ACETAMINOPHEN W/OXYCODONE [Concomitant]
     Dosage: 325-5 MG, AS NEEDED (TAKE 2 TABLET MOUTH EVERY 4 HOURS AS NEEDED)
     Route: 048
  5. ONDANSETRON [Concomitant]
     Indication: NAUSEA
     Dosage: 4 MG, AS NEEDED (TAKE 1 TABLET BY MOUTH EVERY 4 HOURS AS NEEDED)
     Route: 048
  6. ONDANSETRON [Concomitant]
     Indication: VOMITING
  7. NYSTATIN [Concomitant]
     Dosage: 5 ML, 4X/DAY
     Route: 048
  8. ENOXAPARIN [Concomitant]
     Dosage: 1 ML, 1X/DAY
     Route: 058
  9. FERROUS SULFATE [Concomitant]
     Dosage: 325 MG, 1X/DAY WITH BREAKFAST
     Route: 048
  10. PROMETHAZINE [Concomitant]
     Indication: NAUSEA
     Dosage: 25 MG, AS NEEDED (TAKE 1 TABLET BY MOUTH EVERY 6 HOURS AS NEEDED)
     Route: 048
  11. PROMETHAZINE [Concomitant]
     Indication: VOMITING
  12. MAGNESIUM HYDROXIDE [Concomitant]
     Dosage: 30 ML, AS NEEDED (ONCE DAILY AS NEEDED)
     Route: 048
  13. DOCUSATE SODIUM\SENNOSIDES [Concomitant]
     Dosage: 8.6-50 MG PER TABLET, TAKE 1 TABLET BY MOUTH TWICE DAILY
     Route: 048
  14. ZOLPIDEM [Concomitant]
     Dosage: 5 MG, AS NEEDED (1 TABLET BY MOUTH AT BEDTIME AS NEEDED)
     Route: 048

REACTIONS (11)
  - Fatigue [Unknown]
  - Failure to thrive [Unknown]
  - Platelet count abnormal [Unknown]
  - White blood cell disorder [Unknown]
  - Muscular weakness [Unknown]
  - Oral pain [Unknown]
  - Dysphagia [Unknown]
  - Tremor [Unknown]
  - Dyspnoea [Unknown]
  - Pleural effusion [Unknown]
  - Decreased appetite [Unknown]
